FAERS Safety Report 7852001-9 (Version None)
Quarter: 2011Q4

REPORT INFORMATION
  Report Type: 
  Country: None (occurrence: None)
  Receive Date: 20111026
  Receipt Date: 20111022
  Transmission Date: 20120403
  Serious: Yes (Other)
  Sender: FDA-Public Use
  Company Number: US-SANOFI-AVENTIS-2011SA070030

PATIENT
  Sex: Male

DRUGS (5)
  1. SOLOSTAR [Suspect]
     Dates: start: 20100101
  2. NOVOLOG [Suspect]
     Route: 065
  3. LANTUS [Suspect]
     Dosage: DOSE:23 UNIT(S)
     Route: 058
     Dates: start: 20100101
  4. NOVOLOG [Suspect]
     Route: 065
     Dates: start: 20100101
  5. LANTUS [Suspect]
     Dosage: DOSE:25 UNIT(S)
     Route: 058

REACTIONS (2)
  - BLOOD GLUCOSE INCREASED [None]
  - HISTOPLASMOSIS [None]
